FAERS Safety Report 5656869-6 (Version None)
Quarter: 2008Q1

REPORT INFORMATION
  Report Type: 
  Country: None (occurrence: None)
  Receive Date: 20080306
  Receipt Date: 20080306
  Transmission Date: 20080703
  Serious: Yes (Hospitalization)
  Sender: FDA-Public Use
  Company Number: None

PATIENT
  Age: 42 Year
  Sex: Male
  Weight: 135.4 kg

DRUGS (1)
  1. SERTRALINE [Suspect]
     Dosage: 50MG AM PO
     Route: 048
     Dates: start: 20071126, end: 20080131

REACTIONS (1)
  - SEROTONIN SYNDROME [None]
